FAERS Safety Report 5050495-8 (Version None)
Quarter: 2006Q3

REPORT INFORMATION
  Report Type: 
  Country: None (occurrence: None)
  Receive Date: 20060707
  Receipt Date: 20060621
  Transmission Date: 20061208
  Serious: Yes (Other)
  Sender: FDA-Public Use
  Company Number: 6023580

PATIENT
  Age: 1 Year
  Sex: Female

DRUGS (1)
  1. METHIMAZOLE [Suspect]
     Indication: HYPERTHYROIDISM
     Dosage: 40,000 MG (40 MG, 1 IN 1 D) TRANSPLACENTAL   MATERNAL USE
     Route: 064

REACTIONS (8)
  - ALOPECIA [None]
  - APLASIA CUTIS CONGENITA [None]
  - BONE SCAN ABNORMAL [None]
  - DRUG EXPOSURE DURING PREGNANCY [None]
  - DYSMORPHISM [None]
  - PREMATURE BABY [None]
  - SCAR [None]
  - SKULL MALFORMATION [None]
